FAERS Safety Report 10222592 (Version 1)
Quarter: 2014Q2

REPORT INFORMATION
  Report Type: Spontaneous
  Country: GB (occurrence: GB)
  Receive Date: 20140606
  Receipt Date: 20140606
  Transmission Date: 20141212
  Serious: Yes (Death)
  Sender: FDA-Public Use
  Company Number: GB-MYLANLABS-2014S1012314

PATIENT
  Sex: Female

DRUGS (2)
  1. MIRTAZAPINE [Suspect]
     Dates: start: 20120329
  2. FLUOXETINE [Suspect]
     Dates: start: 20120423

REACTIONS (3)
  - Completed suicide [Fatal]
  - Depression [Not Recovered/Not Resolved]
  - Personality change [Not Recovered/Not Resolved]
